FAERS Safety Report 12074921 (Version 4)
Quarter: 2016Q2

REPORT INFORMATION
  Report Type: Report from Study
  Country: US (occurrence: US)
  Receive Date: 20160212
  Receipt Date: 20160614
  Transmission Date: 20160815
  Serious: Yes (Other)
  Sender: FDA-Public Use
  Company Number: US-TEVA-634494USA

PATIENT
  Age: 34 Year
  Sex: Female

DRUGS (1)
  1. CLARAVIS [Suspect]
     Active Substance: ISOTRETINOIN
     Dosage: 80 MILLIGRAM DAILY;
     Route: 048
     Dates: start: 20151001, end: 20160204

REACTIONS (1)
  - Unintended pregnancy [Recovered/Resolved]

NARRATIVE: CASE EVENT DATE: 20160204
